FAERS Safety Report 14460704 (Version 1)
Quarter: 2018Q1

REPORT INFORMATION
  Report Type: Report from Study
  Country: FR (occurrence: FR)
  Receive Date: 20180130
  Receipt Date: 20180130
  Transmission Date: 20180509
  Serious: Yes (Life-Threatening)
  Sender: FDA-Public Use
  Company Number: FR-PFIZER INC-2017209478

PATIENT
  Age: 4 Year
  Sex: Male
  Weight: 19 kg

DRUGS (11)
  1. ONCASPAR [Suspect]
     Active Substance: PEGASPARGASE
     Indication: ACUTE LYMPHOCYTIC LEUKAEMIA
     Dosage: 945 IU, UNK
     Route: 042
     Dates: start: 20170118, end: 20170118
  2. VINCRISTINE SULFATE. [Suspect]
     Active Substance: VINCRISTINE SULFATE
     Dosage: 1.14 MG, SINGLE
     Route: 042
     Dates: start: 20170207, end: 20170207
  3. ONCASPAR [Suspect]
     Active Substance: PEGASPARGASE
     Dosage: 945 IU, SINGLE
     Route: 042
     Dates: start: 20170128, end: 20170128
  4. ONCASPAR [Suspect]
     Active Substance: PEGASPARGASE
     Dosage: 945 IU, SINGLE
     Route: 042
     Dates: start: 20170211, end: 20170211
  5. VINCRISTINE SULFATE. [Suspect]
     Active Substance: VINCRISTINE SULFATE
     Indication: ACUTE LYMPHOCYTIC LEUKAEMIA
     Dosage: 1.14 MG, SINGLE
     Route: 042
     Dates: start: 20170124, end: 20170124
  6. DEXAMETHASONE. [Suspect]
     Active Substance: DEXAMETHASONE
     Indication: ACUTE LYMPHOCYTIC LEUKAEMIA
     Dosage: 4 MG, UNK
     Route: 048
     Dates: start: 20170124, end: 20170213
  7. VINCRISTINE SULFATE. [Suspect]
     Active Substance: VINCRISTINE SULFATE
     Dosage: 1.14 MG, SINGLE
     Route: 042
     Dates: start: 20170131, end: 20170131
  8. METHOTREXATE SODIUM. [Suspect]
     Active Substance: METHOTREXATE SODIUM
     Indication: ACUTE LYMPHOCYTIC LEUKAEMIA
     Dosage: 12 MG, UNK
     Route: 037
     Dates: start: 20170116, end: 20170209
  9. PREDNISOLONE. [Suspect]
     Active Substance: PREDNISOLONE
     Indication: ACUTE LYMPHOCYTIC LEUKAEMIA
     Dosage: 161 MG, UNK
     Route: 048
     Dates: end: 20170123
  10. VINCRISTINE SULFATE. [Suspect]
     Active Substance: VINCRISTINE SULFATE
     Dosage: 1.14 MG, UNK
     Route: 042
     Dates: start: 20170214
  11. VINCRISTINE SULFATE. [Suspect]
     Active Substance: VINCRISTINE SULFATE
     Dosage: UNK

REACTIONS (1)
  - Cerebral venous thrombosis [Recovered/Resolved]

NARRATIVE: CASE EVENT DATE: 20170214
